FAERS Safety Report 16505665 (Version 5)
Quarter: 2020Q1

REPORT INFORMATION
  Report Type: Spontaneous
  Country: US (occurrence: US)
  Receive Date: 20190701
  Receipt Date: 20200304
  Transmission Date: 20200409
  Serious: Yes (Other)
  Sender: FDA-Public Use
  Company Number: US-SA-2019SA176628

PATIENT
  Age: 56 Year
  Sex: Female
  Weight: 47.62 kg

DRUGS (24)
  1. ACETAMINOPHEN. [Concomitant]
     Active Substance: ACETAMINOPHEN
  2. VITAMIN D3 [Concomitant]
     Active Substance: CHOLECALCIFEROL
  3. ZYRTEC [Concomitant]
     Active Substance: CETIRIZINE HYDROCHLORIDE
  4. XARELTO [Concomitant]
     Active Substance: RIVAROXABAN
  5. SPIRIVA RESPIMAT [Concomitant]
     Active Substance: TIOTROPIUM BROMIDE
     Route: 055
  6. PEPCID [Concomitant]
     Active Substance: FAMOTIDINE
  7. CALCIUM + D3 [CALCIUM;COLECALCIFEROL] [Concomitant]
  8. ACCOLATE [Concomitant]
     Active Substance: ZAFIRLUKAST
  9. DUPIXENT [Suspect]
     Active Substance: DUPILUMAB
     Indication: ASTHMA
     Dosage: 300 MG, QOW
     Route: 058
     Dates: start: 2019
  10. LIDOCAINE. [Concomitant]
     Active Substance: LIDOCAINE
  11. DIPHENHYDRAMINE. [Concomitant]
     Active Substance: DIPHENHYDRAMINE
  12. GAMUNEX [Concomitant]
     Active Substance: HUMAN IMMUNOGLOBULIN G
  13. METHOTREXATE. [Concomitant]
     Active Substance: METHOTREXATE
  14. NEXIUM I.V. [Concomitant]
     Active Substance: ESOMEPRAZOLE SODIUM
  15. DILAUDID [Concomitant]
     Active Substance: HYDROMORPHONE HYDROCHLORIDE
  16. ZOLOFT [Concomitant]
     Active Substance: SERTRALINE HYDROCHLORIDE
  17. LYRICA [Concomitant]
     Active Substance: PREGABALIN
  18. SYNTHROID [Concomitant]
     Active Substance: LEVOTHYROXINE SODIUM
  19. CYMBALTA [Concomitant]
     Active Substance: DULOXETINE HYDROCHLORIDE
  20. NUCALA [Concomitant]
     Active Substance: MEPOLIZUMAB
     Dosage: VIAL
  21. ZOFRAN [Concomitant]
     Active Substance: ONDANSETRON HYDROCHLORIDE
  22. EPINEPHRINE. [Concomitant]
     Active Substance: EPINEPHRINE
  23. CLONAZEPAM. [Concomitant]
     Active Substance: CLONAZEPAM
  24. MULTIPLE VITAMINS [Concomitant]
     Active Substance: VITAMINS

REACTIONS (4)
  - Osteoarthritis [Unknown]
  - Asthma [Recovered/Resolved]
  - Headache [Unknown]
  - Selective IgG subclass deficiency [Unknown]

NARRATIVE: CASE EVENT DATE: 2019
